FAERS Safety Report 10229678 (Version 1)
Quarter: 2014Q2

REPORT INFORMATION
  Report Type: Report from Study
  Country: US (occurrence: US)
  Receive Date: 20140611
  Receipt Date: 20140611
  Transmission Date: 20141212
  Serious: Yes (Other)
  Sender: FDA-Public Use
  Company Number: PHEH2014US011026

PATIENT
  Age: 12 Year
  Sex: Female

DRUGS (9)
  1. TOBI [Suspect]
     Dosage: UNK UKN, BID
     Route: 055
     Dates: end: 201405
  2. MIRALAX [Concomitant]
     Dosage: UNK UKN, UNK
  3. VITAMAN [Concomitant]
     Dosage: UNK UKN, UNK
  4. OMEPRAZOLE [Concomitant]
     Dosage: UNK UKN, UNK
  5. ALLEGRA [Concomitant]
     Dosage: UNK UKN, UNK
  6. CREON [Concomitant]
     Dosage: UNK UKN, UNK
  7. SINGULAIR [Concomitant]
     Dosage: UNK UKN, UNK
  8. XOPENEX [Concomitant]
     Dosage: UNK UKN, UNK
  9. PULMOZYME [Concomitant]
     Dosage: UNK UKN, UNK

REACTIONS (2)
  - Staphylococcal infection [Unknown]
  - Cough [Unknown]
